FAERS Safety Report 10241678 (Version 6)
Quarter: 2016Q1

REPORT INFORMATION
  Report Type: Spontaneous
  Country: CA (occurrence: CA)
  Receive Date: 20140617
  Receipt Date: 20160120
  Transmission Date: 20160525
  Serious: Yes (Other)
  Sender: FDA-Public Use
  Company Number: CA-ROCHE-1418004

PATIENT
  Age: 48 Year
  Sex: Female
  Weight: 47 kg

DRUGS (2)
  1. AVASTIN [Suspect]
     Active Substance: BEVACIZUMAB
     Indication: PRODUCT USED FOR UNKNOWN INDICATION
     Route: 042
  2. SANDOSTATIN LAR DEPOT [Suspect]
     Active Substance: OCTREOTIDE ACETATE
     Indication: NEUROENDOCRINE TUMOUR
     Route: 030

REACTIONS (23)
  - Muscle spasms [Recovered/Resolved]
  - Weight increased [Recovered/Resolved]
  - Injection site pain [Recovered/Resolved]
  - Dysphonia [Recovered/Resolved]
  - Menstruation irregular [Recovered/Resolved]
  - Blood pressure decreased [Recovered/Resolved]
  - Injection site haemorrhage [Recovered/Resolved]
  - Dry skin [Recovered/Resolved]
  - Uterine polyp [Recovered/Resolved]
  - Nasopharyngitis [Recovered/Resolved]
  - Oropharyngeal pain [Recovered/Resolved]
  - Skin warm [Recovered/Resolved]
  - Anxiety [Recovered/Resolved]
  - Blood iron decreased [Recovered/Resolved]
  - Oedema [Recovered/Resolved]
  - Diarrhoea [Recovered/Resolved]
  - Blood pressure increased [Recovered/Resolved]
  - Cough [Recovered/Resolved]
  - Injection site bruising [Recovered/Resolved]
  - Heart rate decreased [Recovered/Resolved]
  - Neck pain [Recovered/Resolved]
  - Body temperature decreased [Recovered/Resolved]
  - Viral infection [Recovered/Resolved]
